FAERS Safety Report 24812696 (Version 1)
Quarter: 2025Q1

REPORT INFORMATION
  Report Type: Spontaneous
  Country: DE (occurrence: DE)
  Receive Date: 20250107
  Receipt Date: 20250107
  Transmission Date: 20250409
  Serious: Yes (Other)
  Sender: GLAXOSMITHKLINE
  Company Number: None

PATIENT

DRUGS (1)
  1. FLUTICASONE PROPIONATE [Suspect]
     Active Substance: FLUTICASONE PROPIONATE
     Indication: Asthma prophylaxis
     Dosage: 2 DF, QD (2 SPRAYS DAILY / 1 IN THE MORNING, 1 IN THE EVENING)
     Route: 055
     Dates: start: 20241219, end: 20241220

REACTIONS (1)
  - Self-destructive behaviour [Recovering/Resolving]

NARRATIVE: CASE EVENT DATE: 20241220
